FAERS Safety Report 9000991 (Version 1)
Quarter: 2013Q1

REPORT INFORMATION
  Report Type: Spontaneous
  Country: US (occurrence: None)
  Receive Date: 20130103
  Receipt Date: 20130103
  Transmission Date: 20140127
  Serious: Yes (Life-Threatening, Hospitalization, Disabling, Other)
  Sender: FDA-Public Use
  Company Number: None

PATIENT
  Age: 91 Year
  Sex: Male
  Weight: 65.77 kg

DRUGS (1)
  1. DENOSUMAB [Suspect]
     Indication: METASTASES TO BONE
     Dates: start: 20100105, end: 20121107

REACTIONS (8)
  - Staring [None]
  - Speech disorder [None]
  - Movement disorder [None]
  - Dysphagia [None]
  - Vomiting [None]
  - Nausea [None]
  - Aspiration [None]
  - Pneumonia [None]
